FAERS Safety Report 4691910-9 (Version None)
Quarter: 2005Q2

REPORT INFORMATION
  Report Type: 
  Country: None (occurrence: None)
  Receive Date: 20050614
  Receipt Date: 20050607
  Transmission Date: 20051028
  Serious: Yes (Hospitalization, Disabling)
  Sender: FDA-Public Use
  Company Number: TPA2005A00581

PATIENT
  Age: 55 Year
  Sex: Male
  Weight: 92.9874 kg

DRUGS (3)
  1. ACTOS [Suspect]
     Indication: DIABETES MELLITUS NON-INSULIN-DEPENDENT
     Dosage: 30 MG, 1 IN 1 D, PER ORAL
     Route: 048
     Dates: start: 20000101
  2. GLUCOTROL XL (GLIPIZIDE) (10 MILLIGRAM) [Concomitant]
  3. GLUCOPHAGE (METFORMIN) (850 MILLIGRAM) [Concomitant]

REACTIONS (4)
  - ARTHROPATHY [None]
  - ASEPTIC NECROSIS BONE [None]
  - FALL [None]
  - JOINT INJURY [None]
